FAERS Safety Report 5858029-2 (Version None)
Quarter: 2008Q3

REPORT INFORMATION
  Report Type: 
  Country: None (occurrence: None)
  Receive Date: 20080826
  Receipt Date: 20080814
  Transmission Date: 20090109
  Serious: Yes (Death, Hospitalization)
  Sender: FDA-Public Use
  Company Number: TW-BAYER-200823370GPV

PATIENT
  Age: 74 Year
  Sex: Male

DRUGS (6)
  1. CIPROFLOXACIN [Suspect]
     Indication: PNEUMONIA
     Route: 042
  2. VANCOMYCIN HYDROCHLORIDE [Suspect]
     Indication: PNEUMONIA
     Route: 042
  3. CEFTRIAXONE [Concomitant]
     Indication: PERITONITIS BACTERIAL
     Route: 033
  4. IMIPENEM [Concomitant]
     Indication: PNEUMONIA
     Route: 042
  5. VANCOMYCIN HYDROCHLORIDE [Concomitant]
     Route: 042
  6. METRONIDAZOLE [Concomitant]
     Indication: PNEUMONIA

REACTIONS (9)
  - ABDOMINAL PAIN [None]
  - FUNGAL PERITONITIS [None]
  - PANCREAS INFECTION [None]
  - PANCREATITIS [None]
  - PERITONITIS BACTERIAL [None]
  - PNEUMONIA [None]
  - PSEUDOCYST [None]
  - PYREXIA [None]
  - SEPTIC SHOCK [None]
